FAERS Safety Report 20390077 (Version 3)
Quarter: 2022Q1

REPORT INFORMATION
  Report Type: Report from Study
  Country: US (occurrence: US)
  Receive Date: 20220128
  Receipt Date: 20220308
  Transmission Date: 20220423
  Serious: Yes (Other)
  Sender: FDA-Public Use
  Company Number: US-SA-2021SA091995

PATIENT
  Age: 58 Year
  Sex: Male

DRUGS (3)
  1. TERIFLUNOMIDE [Suspect]
     Active Substance: TERIFLUNOMIDE
     Indication: Multiple sclerosis
     Dosage: 14 MG, QD
     Route: 048
     Dates: start: 20190110
  2. TERIFLUNOMIDE [Suspect]
     Active Substance: TERIFLUNOMIDE
     Dosage: 14 MG, QOD
     Route: 048
  3. TERIFLUNOMIDE [Suspect]
     Active Substance: TERIFLUNOMIDE
     Dosage: 14 MG, QD
     Route: 048
     Dates: start: 20220106

REACTIONS (20)
  - Chest injury [Not Recovered/Not Resolved]
  - Neck injury [Not Recovered/Not Resolved]
  - Anxiety [Recovering/Resolving]
  - Depression [Recovering/Resolving]
  - Aphasia [Not Recovered/Not Resolved]
  - Memory impairment [Not Recovered/Not Resolved]
  - Condition aggravated [Not Recovered/Not Resolved]
  - Visual acuity reduced [Unknown]
  - Throat clearing [Unknown]
  - Stress [Not Recovered/Not Resolved]
  - Fatigue [Unknown]
  - Diplopia [Unknown]
  - Sluggishness [Unknown]
  - Feeling abnormal [Unknown]
  - Back pain [Not Recovered/Not Resolved]
  - Diarrhoea [Recovering/Resolving]
  - Post-traumatic stress disorder [Not Recovered/Not Resolved]
  - Anger [Not Recovered/Not Resolved]
  - Product use issue [Unknown]
  - Product dose omission issue [Unknown]

NARRATIVE: CASE EVENT DATE: 20210301
